FAERS Safety Report 18391976 (Version 6)
Quarter: 2024Q3

REPORT INFORMATION
  Report Type: Report from Study
  Country: US (occurrence: US)
  Receive Date: 20201016
  Receipt Date: 20240926
  Transmission Date: 20241017
  Serious: Yes (Other)
  Sender: DAIICHI
  Company Number: None

PATIENT
  Sex: Male

DRUGS (5)
  1. PEXIDARTINIB [Suspect]
     Active Substance: PEXIDARTINIB
     Indication: Synovitis
     Dosage: 200MG QAM, 400MG QPM, BID
     Route: 048
     Dates: start: 20200929
  2. PEXIDARTINIB [Suspect]
     Active Substance: PEXIDARTINIB
     Indication: Giant cell tumour of tendon sheath
     Dosage: 125 MG, THREE CAPSULES DAILY (TID)
     Route: 048
     Dates: start: 20200929
  3. PEXIDARTINIB [Suspect]
     Active Substance: PEXIDARTINIB
     Dosage: 125MG EVERY MORNING 125MG EVERY EVENING
     Route: 048
     Dates: start: 20200929
  4. PEXIDARTINIB [Suspect]
     Active Substance: PEXIDARTINIB
     Dosage: 125MG 1 CAPSULE BY MOUTH EVERY MORNING AND 2 CAPSULES EVERY EVENING
     Route: 048
     Dates: start: 20200929
  5. PEXIDARTINIB [Suspect]
     Active Substance: PEXIDARTINIB
     Dosage: 125 MG, TID (1 CAPSULE BY MOUTH EVERY MORNING AND 2 CAPSULES EVERY EVENING)
     Route: 048
     Dates: start: 20231017

REACTIONS (19)
  - Hepatitis [Recovered/Resolved]
  - Pancreatic carcinoma [Unknown]
  - Cough [Recovered/Resolved]
  - Pain [Unknown]
  - Pain [Not Recovered/Not Resolved]
  - Hunger [Not Recovered/Not Resolved]
  - Laboratory test abnormal [Recovered/Resolved]
  - Odynophagia [Not Recovered/Not Resolved]
  - Dysphagia [Not Recovered/Not Resolved]
  - Drain site complication [Unknown]
  - Eating disorder [Unknown]
  - Swelling face [Not Recovered/Not Resolved]
  - Weight decreased [Unknown]
  - Swelling face [Not Recovered/Not Resolved]
  - Abdominal pain upper [Not Recovered/Not Resolved]
  - Liver function test increased [Not Recovered/Not Resolved]
  - Hepatic enzyme increased [Recovered/Resolved]
  - Hepatic enzyme abnormal [Not Recovered/Not Resolved]
  - Wrong technique in product usage process [Unknown]

NARRATIVE: CASE EVENT DATE: 20200101
